FAERS Safety Report 18391076 (Version 2)
Quarter: 2020Q4

REPORT INFORMATION
  Report Type: Spontaneous
  Country: US (occurrence: US)
  Receive Date: 20201015
  Receipt Date: 20201031
  Transmission Date: 20210114
  Serious: Yes (Death, Other)
  Sender: FDA-Public Use
  Company Number: US-ABBVIE-20K-163-3610858-00

PATIENT
  Age: 68 Year
  Sex: Male

DRUGS (2)
  1. IMBRUVICA [Suspect]
     Active Substance: IBRUTINIB
     Indication: MANTLE CELL LYMPHOMA
     Route: 048
  2. IMBRUVICA [Suspect]
     Active Substance: IBRUTINIB
     Route: 048
     Dates: end: 201901

REACTIONS (1)
  - Malignant neoplasm progression [Fatal]

NARRATIVE: CASE EVENT DATE: 20191229
